FAERS Safety Report 4300447-8 (Version None)
Quarter: 2004Q1

REPORT INFORMATION
  Report Type: 
  Country: None (occurrence: None)
  Receive Date: 20040218
  Receipt Date: 20040217
  Transmission Date: 20041129
  Serious: Yes (Life-Threatening)
  Sender: FDA-Public Use
  Company Number: HQWYE847522DEC03

PATIENT
  Age: 51 Year
  Sex: Male

DRUGS (3)
  1. CORDAREX (AMIODARONE, INJECTION) [Suspect]
     Indication: ATRIAL FIBRILLATION
     Dosage: 900 MG 1X PER 1 DAY, INTRAVENOUS
     Route: 042
     Dates: start: 20031017, end: 20031018
  2. CORDAREX (AMIODARONE, INJECTION) [Suspect]
     Indication: TACHYARRHYTHMIA
     Dosage: 900 MG 1X PER 1 DAY, INTRAVENOUS
     Route: 042
     Dates: start: 20031017, end: 20031018
  3. MARCUMAR [Concomitant]

REACTIONS (3)
  - ACUTE PRERENAL FAILURE [None]
  - ALCOHOL WITHDRAWAL SYNDROME [None]
  - HEPATIC FAILURE [None]
